FAERS Safety Report 18933395 (Version 1)
Quarter: 2021Q1

REPORT INFORMATION
  Report Type: Spontaneous
  Country: US (occurrence: US)
  Receive Date: 20210224
  Receipt Date: 20210224
  Transmission Date: 20210420
  Serious: Yes (Disabling)
  Sender: FDA-Public Use
  Company Number: None

PATIENT
  Age: 42 Year
  Sex: Female
  Weight: 85.5 kg

DRUGS (4)
  1. EMGALITY [Suspect]
     Active Substance: GALCANEZUMAB-GNLM
     Indication: MIGRAINE
     Dosage: ?          QUANTITY:1 INJECTION(S);OTHER ;OTHER ROUTE:INJECTION IN BUTTOCKS?
     Dates: start: 20190315, end: 20210115
  2. CLARITIN [Concomitant]
     Active Substance: LORATADINE
  3. DIAMOX SEQUELS [Concomitant]
     Active Substance: ACETAZOLAMIDE
  4. ALBUTEROL. [Concomitant]
     Active Substance: ALBUTEROL

REACTIONS (3)
  - Haemorrhage [None]
  - Alopecia [None]
  - Constipation [None]

NARRATIVE: CASE EVENT DATE: 20200715
